FAERS Safety Report 5530284-8 (Version None)
Quarter: 2007Q4

REPORT INFORMATION
  Report Type: 
  Country: None (occurrence: None)
  Receive Date: 20071127
  Receipt Date: 20071127
  Transmission Date: 20080405
  Serious: Yes (Hospitalization)
  Sender: FDA-Public Use
  Company Number: None

PATIENT
  Age: 49 Year
  Sex: Female
  Weight: 90.7194 kg

DRUGS (2)
  1. ADVIL [Suspect]
     Indication: EPICONDYLITIS
     Dosage: 200 MG 1 DAY PO
     Route: 048
     Dates: start: 20070917, end: 20071031
  2. MOTRIN [Suspect]
     Indication: GASTROOESOPHAGEAL REFLUX DISEASE
     Dosage: 1 DOSE IN HOSPITAL IV
     Route: 042
     Dates: start: 20071102, end: 20071102

REACTIONS (4)
  - ANXIETY [None]
  - DRUG HYPERSENSITIVITY [None]
  - GASTROOESOPHAGEAL REFLUX DISEASE [None]
  - PANIC ATTACK [None]
